FAERS Safety Report 9778042 (Version 2)
Quarter: 2013Q4

REPORT INFORMATION
  Report Type: Spontaneous
  Country: FR (occurrence: FR)
  Receive Date: 20131223
  Receipt Date: 20131227
  Transmission Date: 20140711
  Serious: Yes (Other)
  Sender: FDA-Public Use
  Company Number: PHHY2013FR146283

PATIENT
  Age: 40 Year
  Sex: Male

DRUGS (3)
  1. SIGNIFOR [Suspect]
     Indication: PITUITARY-DEPENDENT CUSHING^S SYNDROME
     Dosage: 600 UG, BID
     Dates: start: 20131129
  2. METOPIRONE [Concomitant]
     Indication: PITUITARY-DEPENDENT CUSHING^S SYNDROME
     Dosage: 24 DF, UNK
  3. METOPIRONE [Concomitant]
     Dosage: 16 DF, DAILY
     Dates: end: 20131129

REACTIONS (4)
  - Hyperglycaemia [Not Recovered/Not Resolved]
  - Hypoglycaemia [Recovered/Resolved]
  - Fatigue [Not Recovered/Not Resolved]
  - Dyspepsia [Not Recovered/Not Resolved]
